FAERS Safety Report 13941080 (Version 1)
Quarter: 2017Q3

REPORT INFORMATION
  Report Type: Spontaneous
  Country: US (occurrence: US)
  Receive Date: 20170906
  Receipt Date: 20170906
  Transmission Date: 20171127
  Serious: No
  Sender: FDA-Public Use
  Company Number: US-ELI_LILLY_AND_COMPANY-US201709000220

PATIENT
  Sex: Female

DRUGS (2)
  1. VITAMIN D3 [Concomitant]
     Active Substance: CHOLECALCIFEROL
     Indication: OSTEOPOROSIS
     Dosage: 3000 MG, UNK
  2. FORTEO [Suspect]
     Active Substance: TERIPARATIDE
     Indication: OSTEOPOROSIS
     Dosage: UNK, DAILY
     Route: 065
     Dates: start: 201611

REACTIONS (13)
  - Gastric dilatation [Unknown]
  - Tremor [Unknown]
  - Weight decreased [Unknown]
  - Heart rate increased [Unknown]
  - Quality of life decreased [Unknown]
  - Feeling abnormal [Unknown]
  - Asthenia [Unknown]
  - Thyroid function test abnormal [Unknown]
  - Balance disorder [Unknown]
  - Insomnia [Unknown]
  - Nephrolithiasis [Unknown]
  - Fatigue [Unknown]
  - Dizziness [Unknown]
